FAERS Safety Report 13296717 (Version 1)
Quarter: 2017Q1

REPORT INFORMATION
  Report Type: Spontaneous
  Country: CA (occurrence: CA)
  Receive Date: 20170306
  Receipt Date: 20170306
  Transmission Date: 20170428
  Serious: Yes (Hospitalization, Other)
  Sender: FDA-Public Use
  Company Number: CA-ORION CORPORATION ORION PHARMA-TREX2016-1200

PATIENT
  Age: 45 Year
  Sex: Male

DRUGS (13)
  1. CORTISONE [Suspect]
     Active Substance: CORTISONE\HYDROCORTISONE
     Route: 048
  2. WARFARIN [Suspect]
     Active Substance: WARFARIN
     Route: 065
  3. IBUPROFEN. [Concomitant]
     Active Substance: IBUPROFEN
     Route: 065
  4. METHOTREXATE (TRADE NAME UNKNOWN) [Suspect]
     Active Substance: METHOTREXATE
     Route: 065
  5. REMICADE [Suspect]
     Active Substance: INFLIXIMAB
     Indication: RHEUMATOID ARTHRITIS
     Route: 042
  6. TYLENOL [Concomitant]
     Active Substance: ACETAMINOPHEN
     Route: 065
  7. DESOXIMETASONE. [Suspect]
     Active Substance: DESOXIMETASONE
     Route: 048
  8. PREDNISONE. [Suspect]
     Active Substance: PREDNISONE
     Route: 065
  9. ARAVA [Concomitant]
     Active Substance: LEFLUNOMIDE
     Route: 065
  10. ENBREL [Suspect]
     Active Substance: ETANERCEPT
     Route: 065
  11. PLAQUENIL [Concomitant]
     Active Substance: HYDROXYCHLOROQUINE SULFATE
     Route: 065
  12. SULFASALAZINE. [Concomitant]
     Active Substance: SULFASALAZINE
     Route: 065
  13. GOLD [Suspect]
     Active Substance: GOLD
     Route: 065

REACTIONS (19)
  - Elbow operation [Unknown]
  - Anxiety [Unknown]
  - Aortic bruit [Unknown]
  - Wrist deformity [Unknown]
  - Gastrointestinal haemorrhage [Unknown]
  - Mobility decreased [Unknown]
  - Nephrolithiasis [Unknown]
  - Skin exfoliation [Unknown]
  - Fibromyalgia [Unknown]
  - Ankle deformity [Unknown]
  - Deformity [Unknown]
  - Nail disorder [Unknown]
  - Shoulder arthroplasty [Unknown]
  - Drug ineffective [Unknown]
  - Arthropathy [Unknown]
  - Hypertension [Unknown]
  - Rheumatoid arthritis [Unknown]
  - Drug hypersensitivity [Unknown]
  - Surgery [Unknown]
